FAERS Safety Report 5571326-3 (Version None)
Quarter: 2007Q4

REPORT INFORMATION
  Report Type: 
  Country: None (occurrence: None)
  Receive Date: 20071219
  Receipt Date: 20071210
  Transmission Date: 20080405
  Serious: Yes (Other)
  Sender: FDA-Public Use
  Company Number: 43515

PATIENT

DRUGS (1)
  1. PROCHLORPERAZINE EDISYLATE INJ [Suspect]

REACTIONS (1)
  - INTERCEPTED MEDICATION ERROR [None]
